FAERS Safety Report 16313106 (Version 8)
Quarter: 2022Q1

REPORT INFORMATION
  Report Type: Other
  Country: CA (occurrence: None)
  Receive Date: 20190515
  Receipt Date: 20220204
  Transmission Date: 20220423
  Serious: Yes (Other)
  Sender: FDA-Public Use
  Company Number: CA-ROCHE-2319135

PATIENT
  Age: 51 Year
  Sex: Female

DRUGS (12)
  1. OCREVUS [Suspect]
     Active Substance: OCRELIZUMAB
     Indication: Primary progressive multiple sclerosis
     Dosage: 300 MG AT DAY 0 AND 14, THEN 600 MG EVERY 6 MONTH
     Route: 042
     Dates: start: 20181220
  2. METFORMIN [Concomitant]
     Active Substance: METFORMIN HYDROCHLORIDE
     Indication: Diabetes mellitus
     Dosage: ONGOING YES
  3. WARFARIN [Concomitant]
     Active Substance: WARFARIN
     Indication: Thrombosis
     Dosage: ONGOING YES
  4. GABAPENTIN [Concomitant]
     Active Substance: GABAPENTIN
     Indication: Neuralgia
     Dosage: ONGOING YES
  5. BACLOFEN [Concomitant]
     Active Substance: BACLOFEN
     Indication: Pain management
     Dosage: ONGOING YES
  6. DALFAMPRIDINE [Concomitant]
     Active Substance: DALFAMPRIDINE
  7. SOLIFENACIN [Concomitant]
     Active Substance: SOLIFENACIN
  8. RABEPRAZOLE [Concomitant]
     Active Substance: RABEPRAZOLE
  9. BACLOFEN [Concomitant]
     Active Substance: BACLOFEN
  10. COVID-19 VACCINE [Concomitant]
     Dosage: MAY 19
  11. JARDIANCE [Concomitant]
     Active Substance: EMPAGLIFLOZIN
  12. XARELTO [Concomitant]
     Active Substance: RIVAROXABAN

REACTIONS (5)
  - Psoriasis [Unknown]
  - Infusion related reaction [Not Recovered/Not Resolved]
  - Lower respiratory tract infection [Recovered/Resolved]
  - Oral herpes [Recovered/Resolved]
  - Rash [Not Recovered/Not Resolved]

NARRATIVE: CASE EVENT DATE: 20190101
